FAERS Safety Report 7048977-2 (Version None)
Quarter: 2010Q4

REPORT INFORMATION
  Report Type: 
  Country: None (occurrence: None)
  Receive Date: 20101018
  Receipt Date: 20101012
  Transmission Date: 20110411
  Serious: Yes (Hospitalization)
  Sender: FDA-Public Use
  Company Number: DE-SANOFI-AVENTIS-2010SA061950

PATIENT
  Age: 63 Year
  Sex: Female
  Weight: 68.5 kg

DRUGS (11)
  1. DOCETAXEL [Suspect]
     Indication: BREAST CANCER
     Route: 041
     Dates: start: 20100923, end: 20100923
  2. DOCETAXEL [Suspect]
     Route: 041
     Dates: start: 20100812, end: 20100812
  3. CYCLOPHOSPHAMIDE [Suspect]
     Indication: BREAST CANCER
     Route: 041
     Dates: start: 20100812, end: 20100812
  4. CYCLOPHOSPHAMIDE [Suspect]
     Route: 041
     Dates: start: 20100923, end: 20100923
  5. DEXAMETHASONE [Suspect]
     Indication: PRODUCT USED FOR UNKNOWN INDICATION
     Dates: start: 20100812
  6. SIMVASTATIN [Concomitant]
     Indication: PRODUCT USED FOR UNKNOWN INDICATION
     Route: 048
     Dates: start: 20100716
  7. NAVOBAN [Concomitant]
     Indication: PRODUCT USED FOR UNKNOWN INDICATION
     Route: 042
     Dates: start: 20100812
  8. MESNA [Concomitant]
     Indication: PRODUCT USED FOR UNKNOWN INDICATION
     Route: 042
     Dates: start: 20100812
  9. UROMITEXAN [Concomitant]
     Indication: PRODUCT USED FOR UNKNOWN INDICATION
     Route: 048
     Dates: start: 20100812
  10. ZOFRAN [Concomitant]
     Indication: PRODUCT USED FOR UNKNOWN INDICATION
     Route: 048
     Dates: start: 20100812
  11. METOCLOPRAMIDE [Concomitant]
     Indication: PRODUCT USED FOR UNKNOWN INDICATION
     Route: 054
     Dates: start: 20100812

REACTIONS (1)
  - TRANSIENT GLOBAL AMNESIA [None]
